FAERS Safety Report 7592346-3 (Version None)
Quarter: 2011Q3

REPORT INFORMATION
  Report Type: 
  Country: None (occurrence: None)
  Receive Date: 20110706
  Receipt Date: 20110629
  Transmission Date: 20111222
  Serious: No
  Sender: FDA-Public Use
  Company Number: US-JNJFOC-20110412416

PATIENT
  Sex: Female

DRUGS (5)
  1. CELEXA [Concomitant]
     Route: 048
  2. ABILIFY [Concomitant]
     Route: 048
  3. TRAZODONE HCL [Concomitant]
     Route: 048
  4. INVEGA SUSTENNA [Suspect]
     Indication: PRODUCT USED FOR UNKNOWN INDICATION
     Route: 030
     Dates: start: 20101201
  5. DEPAKOTE [Concomitant]
     Route: 048

REACTIONS (1)
  - EXTRAPYRAMIDAL DISORDER [None]
